FAERS Safety Report 8557297-6 (Version None)
Quarter: 2012Q3

REPORT INFORMATION
  Report Type: 
  Country: None (occurrence: None)
  Receive Date: 20120726
  Receipt Date: 20120726
  Transmission Date: 20120928
  Serious: Yes (Hospitalization)
  Sender: FDA-Public Use
  Company Number: None

PATIENT
  Sex: Male
  Weight: 91.173 kg

DRUGS (18)
  1. IBUPROFEN (ADVIL) [Concomitant]
  2. COMPAZINE [Concomitant]
  3. PERMETHRIN [Concomitant]
  4. AMBIEN [Concomitant]
  5. TRIAMCINOLONE [Concomitant]
  6. METFORMIN HYDROCHLORIDE [Concomitant]
  7. MMX SOLUTION [Concomitant]
  8. RAMIPRIL [Concomitant]
  9. LEXAPRO [Concomitant]
  10. ASPIRIN [Concomitant]
  11. VICODIN [Concomitant]
  12. ZOFRAN [Concomitant]
  13. TAXOTERE [Suspect]
     Indication: PROSTATE CANCER
     Dosage: 138 MG IVPB/1425 MG IVPS
     Route: 042
     Dates: start: 20120716
  14. XGEVA [Concomitant]
  15. MILK OF MAGNESIA TAB [Concomitant]
  16. RAD001 2.5 MG [Suspect]
     Indication: PROSTATE CANCER
     Dosage: RAD001 2.5 MG PO
     Route: 048
     Dates: start: 20120602, end: 20120716
  17. LUPRON [Concomitant]
  18. DECADRON PHOSPHATE [Concomitant]

REACTIONS (6)
  - ASTHENIA [None]
  - WHITE BLOOD CELL COUNT DECREASED [None]
  - CHEST PAIN [None]
  - PAIN [None]
  - CHILLS [None]
  - SENSORY DISTURBANCE [None]
